FAERS Safety Report 5972041-4 (Version None)
Quarter: 2008Q4

REPORT INFORMATION
  Report Type: 
  Country: None (occurrence: None)
  Receive Date: 20081201
  Receipt Date: 20080225
  Transmission Date: 20090506
  Serious: No
  Sender: FDA-Public Use
  Company Number: US-TEVA-167257USA

PATIENT
  Sex: Female
  Weight: 44.038 kg

DRUGS (3)
  1. SALBUTAMOL SULFATE INHALATION, 0.09 MG [Suspect]
     Dosage: 2 PUFFS TWICE DAILY
  2. SERETIDE                           /01420901 [Concomitant]
  3. MONTELUKAST SODIUM [Concomitant]

REACTIONS (5)
  - BLISTER [None]
  - CAUSTIC INJURY [None]
  - DRUG ADMINISTRATION ERROR [None]
  - SKIN BURNING SENSATION [None]
  - SKIN REACTION [None]
